FAERS Safety Report 8863961 (Version 1)
Quarter: 2012Q4

REPORT INFORMATION
  Report Type: 
  Country: US (occurrence: US)
  Receive Date: 20121024
  Receipt Date: 20121024
  Transmission Date: 20130627
  Serious: No
  Sender: FDA-Public Use
  Company Number: US-AMGEN-USASP2011064962

PATIENT
  Age: 52 Year
  Sex: Male
  Weight: 91.15 kg

DRUGS (5)
  1. ENBREL [Suspect]
     Indication: PRODUCT USED FOR UNKNOWN INDICATION
     Dosage: 50 mg, 2 times/wk
     Route: 058
  2. ATARAX                             /00058401/ [Concomitant]
     Dosage: UNK
  3. TRIAMCINOLON                       /00031901/ [Concomitant]
     Dosage: 0.1 %, UNK
  4. LORTAB                             /00607101/ [Concomitant]
     Dosage: UNK
  5. PREDNISONE [Concomitant]
     Dosage: 20 mg, UNK

REACTIONS (1)
  - Pulmonary mass [Unknown]
